FAERS Safety Report 6544785-7 (Version None)
Quarter: 2010Q1

REPORT INFORMATION
  Report Type: 
  Country: None (occurrence: None)
  Receive Date: 20100120
  Receipt Date: 20100120
  Transmission Date: 20100710
  Serious: No
  Sender: FDA-Public Use
  Company Number: None

PATIENT
  Age: 42 Year
  Sex: Female
  Weight: 62.5964 kg

DRUGS (1)
  1. ENDOCET 5-325 ENDO LABS [Suspect]
     Indication: POSTOPERATIVE ANALGESIA
     Dosage: 1 TABLET EVERY 4 HOURS PO
     Route: 048
     Dates: start: 20100107, end: 20100115

REACTIONS (4)
  - ANXIETY [None]
  - CRYING [None]
  - DRUG WITHDRAWAL SYNDROME [None]
  - PANIC ATTACK [None]
